FAERS Safety Report 4677165-X (Version None)
Quarter: 2005Q2

REPORT INFORMATION
  Report Type: 
  Country: None (occurrence: None)
  Receive Date: 20050526
  Receipt Date: 20050516
  Transmission Date: 20051028
  Serious: Yes (Hospitalization)
  Sender: FDA-Public Use
  Company Number: 2005076810

PATIENT
  Age: 64 Year
  Sex: Male
  Weight: 78 kg

DRUGS (7)
  1. EPIRUBICIN [Suspect]
     Indication: CHEMOTHERAPY
     Dosage: (100 MG) INTRAVENOUS
     Route: 042
     Dates: start: 20050120, end: 20050120
  2. CISPLATIN [Suspect]
     Indication: CHEMOTHERAPY
     Dosage: (120 MG) INTRAVENOUS
     Route: 042
     Dates: start: 20050120, end: 20050120
  3. CAPECITABINE (CAPECITABINE) [Suspect]
     Indication: CHEMOTHERAPY
     Dosage: (240 MG) ORAL
     Route: 048
     Dates: start: 20050120, end: 20050130
  4. METOCLOPRAMIDE [Concomitant]
  5. DEXAMETHASONE [Concomitant]
  6. TINZAPARIN SODIUM (HEPARIN-FRACTION, SODIUM SALT) [Concomitant]
  7. ENOXAPARIN SODIUM [Concomitant]

REACTIONS (7)
  - HYPERHIDROSIS [None]
  - HYPOCALCAEMIA [None]
  - NEUTROPHIL COUNT DECREASED [None]
  - PH BODY FLUID ABNORMAL [None]
  - PRODUCTIVE COUGH [None]
  - PYREXIA [None]
  - WHITE BLOOD CELL COUNT DECREASED [None]
